FAERS Safety Report 5853937-0 (Version None)
Quarter: 2008Q3

REPORT INFORMATION
  Report Type: 
  Country: None (occurrence: None)
  Receive Date: 20080822
  Receipt Date: 20080819
  Transmission Date: 20090109
  Serious: Yes (Hospitalization, Disabling)
  Sender: FDA-Public Use
  Company Number: B0524296A

PATIENT
  Age: 94 Year
  Sex: Female
  Weight: 45 kg

DRUGS (3)
  1. ARIXTRA [Suspect]
     Indication: DRUG USE FOR UNKNOWN INDICATION
     Dosage: 2.5MG PER DAY
     Route: 058
     Dates: start: 20080517, end: 20080523
  2. FLUMARIN [Concomitant]
     Indication: INFECTION PROPHYLAXIS
     Dosage: 2G PER DAY
     Route: 042
     Dates: start: 20080516, end: 20080529
  3. UNKNOWN DRUG [Concomitant]
     Indication: ANALGESIA
     Route: 054
     Dates: start: 20080513, end: 20080520

REACTIONS (4)
  - ALTERED STATE OF CONSCIOUSNESS [None]
  - POST PROCEDURAL HAEMORRHAGE [None]
  - SHOCK HAEMORRHAGIC [None]
  - UNRESPONSIVE TO STIMULI [None]
